FAERS Safety Report 9631844 (Version 1)
Quarter: 2013Q4

REPORT INFORMATION
  Report Type: Spontaneous
  Country: KR (occurrence: None)
  Receive Date: 20131015
  Receipt Date: 20131015
  Transmission Date: 20140711
  Serious: Yes (Death, Other)
  Sender: FDA-Public Use
  Company Number: FK201304521

PATIENT
  Age: 71 Year
  Sex: Male

DRUGS (4)
  1. ANTIHYPERTENSIVES (ANTIHYPERTENSIVES) [Concomitant]
  2. DRUGS USED IN BENIGN PROSTATIC HYPERTROPHY (DRUGS USED IN BENIGN PROSTATIC HYPERTROPHY) [Concomitant]
  3. METHYLPREDNISOLONE (MANUFACTURER UNKNOWN) (METHYLPREDNISOLONE SODIUM SUCCINATE) (METHYLPREDNISOLONE SODIUM SUCCINATE) [Suspect]
     Indication: PRODUCT USED FOR UNKNOWN INDICATION
     Route: 042
  4. PREDNISOLONE (PREDNISOLONE) [Concomitant]

REACTIONS (3)
  - Oedema peripheral [None]
  - Renal failure acute [None]
  - Staphylococcal infection [None]
